FAERS Safety Report 15143258 (Version 2)
Quarter: 2018Q3

REPORT INFORMATION
  Report Type: Report from Study
  Country: BR (occurrence: BR)
  Receive Date: 20180713
  Receipt Date: 20180810
  Transmission Date: 20181010
  Serious: Yes (Other)
  Sender: FDA-Public Use
  Company Number: BR-JNJFOC-20180713896

PATIENT
  Age: 71 Year
  Sex: Female
  Weight: 45.5 kg

DRUGS (5)
  1. OSSONE [Concomitant]
     Route: 065
  2. KETOPROFEN. [Concomitant]
     Active Substance: KETOPROFEN
     Route: 065
  3. SIMPONI [Suspect]
     Active Substance: GOLIMUMAB
     Indication: PSORIATIC ARTHROPATHY
     Route: 058
     Dates: start: 20180518, end: 20180628
  4. CORTICORTEN [Concomitant]
     Active Substance: PREDNISONE
     Route: 065
  5. NEVRIX [Concomitant]
     Route: 065

REACTIONS (3)
  - Abdominal pain upper [Unknown]
  - Blood pressure decreased [Unknown]
  - Pneumonia [Recovering/Resolving]

NARRATIVE: CASE EVENT DATE: 201807
